FAERS Safety Report 9247523 (Version 1)
Quarter: 2013Q2

REPORT INFORMATION
  Report Type: Spontaneous
  Country: US (occurrence: US)
  Receive Date: 20130423
  Receipt Date: 20130423
  Transmission Date: 20140414
  Serious: No
  Sender: FDA-Public Use
  Company Number: US-BAYER-2013-050767

PATIENT
  Age: 63 Year
  Sex: Female

DRUGS (1)
  1. ULTRAVIST [Suspect]
     Indication: COMPUTERISED TOMOGRAM ABDOMEN
     Dosage: 100CC CONTRAST

REACTIONS (4)
  - Urticaria [None]
  - Sneezing [None]
  - Pruritus [None]
  - Burning sensation [None]
